FAERS Safety Report 17872982 (Version 2)
Quarter: 2022Q1

REPORT INFORMATION
  Report Type: Spontaneous
  Country: US (occurrence: US)
  Receive Date: 20200608
  Receipt Date: 20220104
  Transmission Date: 20220423
  Serious: Yes (Death, Other)
  Sender: FDA-Public Use
  Company Number: US-AMGEN-USASP2020088235

PATIENT
  Age: 58 Year
  Sex: Male

DRUGS (5)
  1. CARFILZOMIB [Suspect]
     Active Substance: CARFILZOMIB
     Indication: Plasma cell myeloma
     Dosage: 20 MILLIGRAM/SQ. METER, CYCLE 1 DAY1/2
     Route: 065
  2. CARFILZOMIB [Suspect]
     Active Substance: CARFILZOMIB
     Dosage: 56 MILLIGRAM/SQ. METER, DAYS  8, 9, 15 AND 16 OF A 28-DAY
     Route: 065
  3. PELAREOREP [Concomitant]
     Active Substance: PELAREOREP
     Dosage: 4.5X 10^10 TCID50
     Route: 065
  4. DEXAMETHASONE [Concomitant]
     Active Substance: DEXAMETHASONE
     Indication: Plasma cell myeloma
     Dosage: 20 MILLIGRAM
  5. TOCILIZUMAB [Concomitant]
     Active Substance: TOCILIZUMAB
     Dosage: UNK

REACTIONS (11)
  - Pneumonia [Fatal]
  - Hypoxia [Unknown]
  - Left ventricular failure [Unknown]
  - Plasma cell myeloma refractory [Unknown]
  - Haemophagocytic lymphohistiocytosis [Unknown]
  - Respiratory failure [Unknown]
  - Cardiac failure acute [Recovered/Resolved]
  - Tumour lysis syndrome [Unknown]
  - Sepsis [Fatal]
  - Therapy partial responder [Unknown]
  - Mental status changes [Unknown]
